FAERS Safety Report 5608910-4 (Version None)
Quarter: 2008Q1

REPORT INFORMATION
  Report Type: 
  Country: None (occurrence: None)
  Receive Date: 20080129
  Receipt Date: 20080129
  Transmission Date: 20080703
  Serious: Yes (Death)
  Sender: FDA-Public Use
  Company Number: None

PATIENT
  Age: 24 Year
  Sex: Female
  Weight: 57.6068 kg

DRUGS (1)
  1. HERCEPTIN [Suspect]
     Indication: BREAST CANCER
     Dosage: 360MG Q3WKS 041
     Dates: start: 20070627, end: 20071227

REACTIONS (2)
  - CARDIAC ARREST [None]
  - ECHOCARDIOGRAM ABNORMAL [None]
